FAERS Safety Report 19758145 (Version 1)
Quarter: 2021Q3

REPORT INFORMATION
  Report Type: Spontaneous
  Country: IN (occurrence: IN)
  Receive Date: 20210828
  Receipt Date: 20210828
  Transmission Date: 20211014
  Serious: Yes (Hospitalization)
  Sender: FDA-Public Use
  Company Number: IN-SETONPHARMA-2021SETLIT00020

PATIENT
  Age: 10 Year
  Sex: Male

DRUGS (8)
  1. PREGABALIN. [Interacting]
     Active Substance: PREGABALIN
     Indication: NEURALGIA
     Route: 065
  2. TACROLIMUS. [Concomitant]
     Active Substance: TACROLIMUS
     Indication: NEPHROTIC SYNDROME
     Route: 065
  3. CALCIUM [Interacting]
     Active Substance: CALCIUM
     Indication: MINERAL SUPPLEMENTATION
     Route: 065
  4. PREDNISOLONE. [Suspect]
     Active Substance: PREDNISOLONE
     Indication: NEPHROTIC SYNDROME
     Dosage: APPROX. 380?460 MG/KG
     Route: 048
  5. AMLODIPINE [Interacting]
     Active Substance: AMLODIPINE BESYLATE
     Indication: HYPERTENSION
     Route: 048
  6. PREDNISOLONE. [Suspect]
     Active Substance: PREDNISOLONE
     Dosage: 40 MG ALTERNATE DAY TAPERING TO 10 MG ALTERNATE DAY
     Route: 065
  7. VITAMIN D NOS [Interacting]
     Active Substance: VITAMIN D NOS
     Indication: VITAMIN D DEFICIENCY
     Route: 065
  8. ENALAPRIL [Interacting]
     Active Substance: ENALAPRIL
     Indication: HYPERTENSION
     Route: 048

REACTIONS (12)
  - Osteoporosis [Recovering/Resolving]
  - Pain in extremity [Recovered/Resolved]
  - Treatment noncompliance [Unknown]
  - Renal lipomatosis [Recovering/Resolving]
  - Hypokinesia [Recovered/Resolved]
  - Back pain [Recovered/Resolved]
  - Cushingoid [Recovering/Resolving]
  - Obesity [Recovering/Resolving]
  - Hypertension [Recovering/Resolving]
  - Osteopenia [Recovering/Resolving]
  - Hypertrichosis [Recovering/Resolving]
  - Cataract subcapsular [Recovering/Resolving]
